FAERS Safety Report 21070314 (Version 2)
Quarter: 2022Q3

REPORT INFORMATION
  Report Type: Spontaneous
  Country: FR (occurrence: FR)
  Receive Date: 20220712
  Receipt Date: 20220920
  Transmission Date: 20221026
  Serious: Yes (Death, Hospitalization, Other)
  Sender: FDA-Public Use
  Company Number: FR-JAZZ-2022-FR-022983

PATIENT
  Age: 47 Year
  Sex: Male

DRUGS (1)
  1. VYXEOS [Suspect]
     Active Substance: CYTARABINE\DAUNORUBICIN
     Indication: Acute myeloid leukaemia
     Dosage: 44 MILLIGRAM/SQ. METER, D1 AND D3
     Dates: start: 20220108, end: 20220119

REACTIONS (6)
  - Leukaemia recurrent [Fatal]
  - Cardio-respiratory distress [Recovered/Resolved]
  - Superficial vein thrombosis [Recovered/Resolved]
  - Syncope [Recovered/Resolved]
  - Sepsis [Recovered/Resolved]
  - Inappropriate schedule of product administration [Recovered/Resolved]

NARRATIVE: CASE EVENT DATE: 20220912
